FAERS Safety Report 16414545 (Version 2)
Quarter: 2019Q3

REPORT INFORMATION
  Report Type: Spontaneous
  Country: US (occurrence: US)
  Receive Date: 20190611
  Receipt Date: 20190924
  Transmission Date: 20191004
  Serious: Yes (Other)
  Sender: FDA-Public Use
  Company Number: US-PFIZER INC-2019241495

PATIENT
  Age: 69 Year
  Sex: Female
  Weight: 72 kg

DRUGS (1)
  1. ESTRING [Suspect]
     Active Substance: ESTRADIOL
     Indication: VULVOVAGINAL DRYNESS
     Dosage: 2 MG, EVERY 3 MONTHS [INSERT 1 RING VAGINALLY EVERY 3 MONTHS]
     Route: 067
     Dates: start: 20190423, end: 20190427

REACTIONS (6)
  - Vaginal haemorrhage [Recovered/Resolved]
  - Drug hypersensitivity [Unknown]
  - Vulvovaginal discomfort [Recovered/Resolved]
  - Bacterial vaginosis [Recovered/Resolved]
  - Rash erythematous [Recovered/Resolved]
  - Genital odour [Recovered/Resolved]

NARRATIVE: CASE EVENT DATE: 2019
